FAERS Safety Report 8066514-0 (Version None)
Quarter: 2012Q1

REPORT INFORMATION
  Report Type: 
  Country: None (occurrence: None)
  Receive Date: 20120124
  Receipt Date: 20120113
  Transmission Date: 20120608
  Serious: Yes (Other)
  Sender: FDA-Public Use
  Company Number: PHHY2012BG004021

PATIENT
  Sex: Female

DRUGS (3)
  1. CARVEDIL [Concomitant]
  2. CO VALSACOR [Concomitant]
  3. RASILEZ [Suspect]
     Indication: HYPERTENSION
     Dosage: 300 MG TWICE DAILY
     Dates: start: 20111101

REACTIONS (1)
  - ASPHYXIA [None]
